FAERS Safety Report 16440480 (Version 1)
Quarter: 2019Q3

REPORT INFORMATION
  Report Type: Spontaneous
  Country: US (occurrence: US)
  Receive Date: 20190617
  Receipt Date: 20190617
  Transmission Date: 20191004
  Serious: Yes (Hospitalization)
  Sender: FDA-Public Use
  Company Number: None

PATIENT
  Age: 28 Year
  Sex: Male
  Weight: 119.4 kg

DRUGS (5)
  1. CLOZAPINE. [Suspect]
     Active Substance: CLOZAPINE
     Indication: PSYCHOTIC DISORDER
     Route: 048
     Dates: start: 20190130, end: 20190410
  2. FENOFIBRATE 145MG DAILY [Concomitant]
     Dates: start: 20190114
  3. LITHIUM CARBONATE 900MG HS [Concomitant]
     Dates: start: 20190114
  4. FLUOXETINE 60MG HS [Concomitant]
     Dates: start: 20190114
  5. ASPIRIN 81MG DAILY [Concomitant]
     Active Substance: ASPIRIN
     Dates: start: 20190114

REACTIONS (4)
  - Lung infiltration [None]
  - Tachycardia [None]
  - Blood pressure increased [None]
  - Pleural effusion [None]

NARRATIVE: CASE EVENT DATE: 20190410
